FAERS Safety Report 19765941 (Version 1)
Quarter: 2021Q3

REPORT INFORMATION
  Report Type: Spontaneous
  Country: US (occurrence: US)
  Receive Date: 20210830
  Receipt Date: 20210830
  Transmission Date: 20211014
  Serious: No
  Sender: FDA-Public Use
  Company Number: US-ANIPHARMA-2021-US-002841

PATIENT
  Sex: Male

DRUGS (1)
  1. ANASTROZOLE. [Suspect]
     Active Substance: ANASTROZOLE
     Indication: BLOOD TESTOSTERONE ABNORMAL
     Dosage: 2 TIMES PER WEEK / 2 TIMES DAILY FOR ONE MONTH / THEN 4 TIMES DAILY FOR 4 DAYS
     Route: 048

REACTIONS (4)
  - Blood pressure increased [Unknown]
  - Off label use [Unknown]
  - Accidental overdose [Unknown]
  - Intentional product misuse [Unknown]

NARRATIVE: CASE EVENT DATE: 20210107
